FAERS Safety Report 7153868-2 (Version None)
Quarter: 2010Q4

REPORT INFORMATION
  Report Type: 
  Country: None (occurrence: None)
  Receive Date: 20101129
  Receipt Date: 20101105
  Transmission Date: 20110411
  Serious: Yes (Death, Other)
  Sender: FDA-Public Use
  Company Number: GER/UKI/10/0016602

PATIENT
  Age: 63 Year
  Sex: Female
  Weight: 65 kg

DRUGS (4)
  1. FLUOXETINE [Suspect]
     Indication: DEPRESSION
     Dosage: 60 MG, 1 IN 1 D, ORAL
     Route: 048
     Dates: start: 20090114
  2. L-TRYPTOPHAN (TRYPTOPHAN, L-) [Suspect]
     Indication: DEPRESSION
     Dosage: 500 MG, 3 IN 1 D
     Dates: start: 20090114, end: 20100225
  3. SINEMET CR [Suspect]
     Indication: PARKINSONISM
     Dosage: 0.5 DOSAGE FORMS, 2 IN 1 D, ORAL
     Route: 048
     Dates: start: 20100115
  4. WARFARIN SODIUM [Suspect]
     Indication: PRODUCT USED FOR UNKNOWN INDICATION

REACTIONS (8)
  - AGITATION [None]
  - BALANCE DISORDER [None]
  - DECREASED APPETITE [None]
  - DIZZINESS [None]
  - FEELING ABNORMAL [None]
  - SUDDEN DEATH [None]
  - THERAPEUTIC AGENT TOXICITY [None]
  - WEIGHT DECREASED [None]
